FAERS Safety Report 7806731-5 (Version None)
Quarter: 2011Q4

REPORT INFORMATION
  Report Type: 
  Country: None (occurrence: None)
  Receive Date: 20111011
  Receipt Date: 20111007
  Transmission Date: 20120403
  Serious: Yes (Hospitalization, Other)
  Sender: FDA-Public Use
  Company Number: US-PFIZER INC-2010045916

PATIENT
  Sex: Male

DRUGS (8)
  1. METOPROLOL [Concomitant]
     Indication: HYPERTENSION
     Dosage: UNK
     Dates: start: 20060101
  2. HYDROCODONE [Concomitant]
     Indication: PAIN
     Dosage: UNK
     Dates: start: 20060101
  3. DIAZEPAM [Concomitant]
     Indication: DEPRESSION
     Dosage: 5MG UNK
     Dates: start: 20020101, end: 20090101
  4. LISINOPRIL [Concomitant]
     Indication: HYPERTENSION
     Dosage: UNK
     Dates: start: 20060101
  5. CYCLOBENZAPRINE [Concomitant]
     Indication: MYALGIA
     Dosage: UNK
     Dates: start: 20060101
  6. CHANTIX [Suspect]
     Indication: SMOKING CESSATION THERAPY
     Dosage: STARTING MONTH PACK AND 1 MG CONTINUING MONTH PACK
     Dates: start: 20080403, end: 20080901
  7. TIZANIDINE [Concomitant]
     Indication: CEREBROVASCULAR ACCIDENT
     Dosage: UNK
     Dates: start: 20060101
  8. OXYCODONE [Concomitant]
     Indication: PAIN
     Dosage: UNK
     Dates: start: 20060101

REACTIONS (3)
  - HALLUCINATION, AUDITORY [None]
  - SUICIDE ATTEMPT [None]
  - DEPRESSION [None]
